FAERS Safety Report 25463691 (Version 4)
Quarter: 2025Q3

REPORT INFORMATION
  Report Type: Spontaneous
  Country: CA (occurrence: CA)
  Receive Date: 20250621
  Receipt Date: 20250823
  Transmission Date: 20251021
  Serious: Yes (Other)
  Sender: CELLTRION
  Company Number: CA-PFIZER INC-202500065400

PATIENT

DRUGS (25)
  1. INFLECTRA [Suspect]
     Active Substance: INFLIXIMAB-DYYB
     Indication: Crohn^s disease
     Route: 042
     Dates: start: 20191129, end: 20200109
  2. INFLECTRA [Suspect]
     Active Substance: INFLIXIMAB-DYYB
     Route: 042
     Dates: start: 20200203, end: 20200427
  3. INFLECTRA [Suspect]
     Active Substance: INFLIXIMAB-DYYB
     Route: 042
     Dates: start: 20200525
  4. INFLECTRA [Suspect]
     Active Substance: INFLIXIMAB-DYYB
     Route: 042
     Dates: start: 20250220
  5. INFLECTRA [Suspect]
     Active Substance: INFLIXIMAB-DYYB
     Route: 042
     Dates: start: 20250320
  6. INFLECTRA [Suspect]
     Active Substance: INFLIXIMAB-DYYB
     Route: 042
     Dates: start: 20250417
  7. INFLECTRA [Suspect]
     Active Substance: INFLIXIMAB-DYYB
     Route: 042
     Dates: start: 20250515
  8. INFLECTRA [Suspect]
     Active Substance: INFLIXIMAB-DYYB
     Route: 042
     Dates: start: 20250612
  9. INFLECTRA [Suspect]
     Active Substance: INFLIXIMAB-DYYB
     Route: 042
     Dates: start: 20250711
  10. INFLECTRA [Suspect]
     Active Substance: INFLIXIMAB-DYYB
     Dates: start: 20250807
  11. CAL D [CALCIUM CARBONATE;COLECALCIFEROL] [Concomitant]
  12. DOMPERIDONE [Concomitant]
     Active Substance: DOMPERIDONE
  13. ERYTHROMYCIN [Concomitant]
     Active Substance: ERYTHROMYCIN
  14. HYDROCHLOROTHIAZIDE [Concomitant]
     Active Substance: HYDROCHLOROTHIAZIDE
  15. OXAZEPAM [Concomitant]
     Active Substance: OXAZEPAM
  16. OXYBUTYNIN [Concomitant]
     Active Substance: OXYBUTYNIN
  17. PANTOPRAZOLE [Concomitant]
     Active Substance: PANTOPRAZOLE
  18. POTASSIUM [Concomitant]
     Active Substance: POTASSIUM
  19. PREDNISONE [Concomitant]
     Active Substance: PREDNISONE
  20. PREGABALIN [Concomitant]
     Active Substance: PREGABALIN
     Indication: Back pain
     Dates: start: 202107
  21. DICYCLOMINE HYDROCHLORIDE [Concomitant]
     Active Substance: DICYCLOMINE HYDROCHLORIDE
  22. PROTRIN DF [Concomitant]
  23. MESALAMINE [Concomitant]
     Active Substance: MESALAMINE
  24. VALSARTAN [Concomitant]
     Active Substance: VALSARTAN
  25. VITAMIN D NOS [Concomitant]
     Active Substance: CHOLECALCIFEROL\ERGOCALCIFEROL

REACTIONS (5)
  - Precancerous condition [Recovered/Resolved]
  - Sinusitis [Recovering/Resolving]
  - Infusion site extravasation [Recovered/Resolved]
  - Rhinorrhoea [Not Recovered/Not Resolved]
  - Headache [Not Recovered/Not Resolved]

NARRATIVE: CASE EVENT DATE: 20250101
